FAERS Safety Report 6963884-9 (Version None)
Quarter: 2010Q3

REPORT INFORMATION
  Report Type: 
  Country: None (occurrence: None)
  Receive Date: 20100831
  Receipt Date: 20100823
  Transmission Date: 20110219
  Serious: Yes (Other)
  Sender: FDA-Public Use
  Company Number: 2010MA002051

PATIENT
  Age: 57 Year
  Sex: Female

DRUGS (8)
  1. NAPROXEN [Suspect]
  2. CELECOXIB [Suspect]
     Dosage: PO
     Route: 048
  3. SERTRALINE HYDROCHLORIDE [Concomitant]
  4. LANSOPRAZOLE [Concomitant]
  5. ACETYLSALICYLIC ACID [Concomitant]
  6. VITAMIN B COMPLEX CAP [Concomitant]
  7. THIAMINE HCL [Concomitant]
  8. SIMVASTATIN [Concomitant]

REACTIONS (2)
  - CAROTID ARTERY DISEASE [None]
  - CEREBRAL INFARCTION [None]
